FAERS Safety Report 12328451 (Version 1)
Quarter: 2016Q2

REPORT INFORMATION
  Report Type: Spontaneous
  Country: US (occurrence: US)
  Receive Date: 20160503
  Receipt Date: 20160503
  Transmission Date: 20160815
  Serious: No
  Sender: FDA-Public Use
  Company Number: US-BEH-2014047512

PATIENT
  Age: 49 Year
  Sex: Female

DRUGS (6)
  1. PHENERGAN [Concomitant]
     Active Substance: PROMETHAZINE HYDROCHLORIDE
  2. HIZENTRA [Suspect]
     Active Substance: HUMAN IMMUNOGLOBULIN G
     Indication: PRIMARY IMMUNODEFICIENCY SYNDROME
     Dosage: 8 GM WEEKLY
  3. TYLENOL [Concomitant]
     Active Substance: ACETAMINOPHEN
  4. HIZENTRA [Suspect]
     Active Substance: HUMAN IMMUNOGLOBULIN G
     Dosage: 8 GM WEEKLY
     Dates: start: 20140806
  5. HIZENTRA [Suspect]
     Active Substance: HUMAN IMMUNOGLOBULIN G
     Indication: IMMUNODEFICIENCY COMMON VARIABLE
     Dosage: 8 GM WEEKLY
  6. BENADRYL [Concomitant]
     Active Substance: DIPHENHYDRAMINE HYDROCHLORIDE

REACTIONS (15)
  - Local swelling [Unknown]
  - Body temperature increased [Unknown]
  - Sinusitis [Unknown]
  - Haematoma [Recovering/Resolving]
  - Vomiting [Recovering/Resolving]
  - Administration site reaction [Unknown]
  - Heart rate increased [Unknown]
  - Dyspnoea [Unknown]
  - Swollen tongue [Recovering/Resolving]
  - Palpitations [Unknown]
  - Nausea [Unknown]
  - Weight decreased [Unknown]
  - Lip swelling [Recovering/Resolving]
  - Laryngitis [Unknown]
  - Tachycardia [Recovering/Resolving]

NARRATIVE: CASE EVENT DATE: 20140813
